FAERS Safety Report 23778792 (Version 1)
Quarter: 2024Q2

REPORT INFORMATION
  Report Type: Spontaneous
  Country: US (occurrence: None)
  Receive Date: 20240423
  Receipt Date: 20240423
  Transmission Date: 20240716
  Serious: No
  Sender: FDA-Public Use
  Company Number: None

PATIENT
  Age: 75 Year
  Sex: Male
  Weight: 93 kg

DRUGS (1)
  1. SUCRALFATE [Suspect]
     Active Substance: SUCRALFATE
     Indication: Pancreatitis acute
     Dosage: FREQUENCY : DAILY;?
     Route: 048
     Dates: end: 20230418

REACTIONS (1)
  - Angioedema [None]

NARRATIVE: CASE EVENT DATE: 20230418
